FAERS Safety Report 9197636 (Version 1)
Quarter: 2013Q1

REPORT INFORMATION
  Report Type: Spontaneous
  Country: EC (occurrence: EC)
  Receive Date: 20130328
  Receipt Date: 20130328
  Transmission Date: 20140127
  Serious: Yes (Other)
  Sender: FDA-Public Use
  Company Number: EC-ABBOTT-13P-047-1069565-00

PATIENT
  Sex: Female

DRUGS (2)
  1. HUMIRA [Suspect]
     Indication: PSORIASIS
     Dates: start: 201301
  2. METHOTREXATE [Suspect]
     Indication: PSORIASIS

REACTIONS (2)
  - Abortion induced [Unknown]
  - Vaginal haemorrhage [Unknown]
